FAERS Safety Report 14443598 (Version 2)
Quarter: 2018Q3

REPORT INFORMATION
  Report Type: Report from Study
  Country: US (occurrence: US)
  Receive Date: 20180125
  Receipt Date: 20180724
  Transmission Date: 20181010
  Serious: No
  Sender: FDA-Public Use
  Company Number: US-AMGEN-USASL2017190778

PATIENT
  Age: 87 Year
  Sex: Female

DRUGS (2)
  1. KYPROLIS [Suspect]
     Active Substance: CARFILZOMIB
     Dosage: 27 MG/M2,  DAYS 8?9 AND 15?16
     Route: 065
  2. KYPROLIS [Suspect]
     Active Substance: CARFILZOMIB
     Indication: PLASMA CELL MYELOMA
     Dosage: 20 MG, DAYS 1 AND 2
     Route: 065

REACTIONS (2)
  - Memory impairment [Unknown]
  - Mobility decreased [Unknown]

NARRATIVE: CASE EVENT DATE: 201712
